FAERS Safety Report 10064544 (Version 2)
Quarter: 2014Q2

REPORT INFORMATION
  Report Type: Spontaneous
  Country: IN (occurrence: IN)
  Receive Date: 20140408
  Receipt Date: 20140416
  Transmission Date: 20141212
  Serious: Yes (Other)
  Sender: FDA-Public Use
  Company Number: IN-ROCHE-1379228

PATIENT
  Age: 50 Year
  Sex: Female

DRUGS (1)
  1. EXXURA [Suspect]
     Indication: HEPATITIS C
     Route: 065

REACTIONS (1)
  - Menstrual disorder [Unknown]
